FAERS Safety Report 6816602-9 (Version None)
Quarter: 2010Q2

REPORT INFORMATION
  Report Type: 
  Country: None (occurrence: None)
  Receive Date: 20100630
  Receipt Date: 20100621
  Transmission Date: 20101027
  Serious: Yes (Life-Threatening, Hospitalization, Other)
  Sender: FDA-Public Use
  Company Number: 2010EU002832

PATIENT
  Age: 67 Year
  Sex: Male
  Weight: 70.3 kg

DRUGS (16)
  1. TACROLIMUS [Suspect]
     Indication: IMMUNOSUPPRESSION
     Dosage: ORAL
     Route: 048
     Dates: start: 20091125, end: 20100504
  2. AMLODIPINE [Concomitant]
  3. ARANESP [Concomitant]
  4. ASPIRIN (ACETYLSALICYLATE LYSINE) [Concomitant]
  5. CITALOPRAM HYDROBROMIDE [Concomitant]
  6. DOCUSATE [Concomitant]
  7. LEVOTHYROXINE SODIUM [Concomitant]
  8. NEORAL [Concomitant]
  9. OMEPRAZOLE [Concomitant]
  10. PREDNISOLONE [Concomitant]
  11. RAMIPRIL [Concomitant]
  12. SENNA (SENNA ALEXANDRINA) [Concomitant]
  13. SIMVASTATIN [Concomitant]
  14. SODIUM BICARBONATE [Concomitant]
  15. SOTALOL HCL [Concomitant]
  16. WARFARIN SODIUM [Concomitant]

REACTIONS (6)
  - ALVEOLITIS ALLERGIC [None]
  - APPARENT LIFE THREATENING EVENT [None]
  - CYTOMEGALOVIRUS TEST POSITIVE [None]
  - INTERSTITIAL LUNG DISEASE [None]
  - PNEUMONIA [None]
  - RESPIRATORY FAILURE [None]
